FAERS Safety Report 5104458-4 (Version None)
Quarter: 2006Q3

REPORT INFORMATION
  Report Type: 
  Country: None (occurrence: None)
  Receive Date: 20060914
  Receipt Date: 20060902
  Transmission Date: 20061208
  Serious: Yes (Other)
  Sender: FDA-Public Use
  Company Number: US-BAYER-200613778BCC

PATIENT
  Age: 23 Year
  Sex: Female
  Weight: 73 kg

DRUGS (2)
  1. ORIGINAL ALKA SELTZER [Suspect]
     Indication: ABDOMINAL PAIN UPPER
     Dosage: TOTAL DAILY DOSE: 650 MG  UNIT DOSE: 325 MG
     Route: 048
     Dates: start: 20060902
  2. PRENATAL VITAMINS [Concomitant]

REACTIONS (3)
  - BLOODY DISCHARGE [None]
  - DRUG EXPOSURE DURING PREGNANCY [None]
  - WRONG TECHNIQUE IN DRUG USAGE PROCESS [None]
